FAERS Safety Report 5420123-8 (Version None)
Quarter: 2007Q3

REPORT INFORMATION
  Report Type: 
  Country: None (occurrence: None)
  Receive Date: 20070815
  Receipt Date: 20070803
  Transmission Date: 20080115
  Serious: Yes (Death, Life-Threatening)
  Sender: FDA-Public Use
  Company Number: 2007-00919

PATIENT
  Age: 59 Year
  Sex: Male
  Weight: 59 kg

DRUGS (8)
  1. VELCADE [Suspect]
     Indication: MULTIPLE MYELOMA
     Dosage: 2.20 MG, INTRAVENOUS
     Route: 042
     Dates: start: 20070319, end: 20070322
  2. DEXAMETHASONE TAB [Concomitant]
  3. SULFAMETHOXAZOLE + TRIMETHOPRIM [Concomitant]
  4. BIOFERMIN (STREPTOCOCCUS FAECALIS, LACTOBACILLUS ACIDOPHILUS, BACILLUS [Concomitant]
  5. PRIMPERAN TAB [Concomitant]
  6. LOPERAMIDE HCL [Concomitant]
  7. NOVAMIN (PROCHLORPERAZINE) [Concomitant]
  8. BUMINATE (ALBUMIN NORMAL HUMAN SERUM) [Concomitant]

REACTIONS (14)
  - ACTIVATED PARTIAL THROMBOPLASTIN TIME PROLONGED [None]
  - ASCITES [None]
  - ASPARTATE AMINOTRANSFERASE INCREASED [None]
  - BLOOD LACTATE DEHYDROGENASE INCREASED [None]
  - DIARRHOEA [None]
  - HAEMATEMESIS [None]
  - HAEMORRHAGIC DIATHESIS [None]
  - HYPOALBUMINAEMIA [None]
  - MALAISE [None]
  - MELAENA [None]
  - MULTIPLE MYELOMA [None]
  - NAUSEA [None]
  - PLATELET COUNT DECREASED [None]
  - PLEURAL EFFUSION [None]
